FAERS Safety Report 7288467-5 (Version None)
Quarter: 2011Q1

REPORT INFORMATION
  Report Type: 
  Country: None (occurrence: None)
  Receive Date: 20110211
  Receipt Date: 20110207
  Transmission Date: 20110831
  Serious: Yes (Life-Threatening, Hospitalization)
  Sender: FDA-Public Use
  Company Number: B0698282A

PATIENT
  Sex: Male

DRUGS (2)
  1. CLAMOXYL [Suspect]
     Indication: TONSILLITIS
     Route: 048
     Dates: start: 20101022, end: 20101022
  2. PROSPAN [Suspect]
     Indication: TONSILLITIS
     Route: 048
     Dates: start: 20101022, end: 20101022

REACTIONS (8)
  - HYPERHIDROSIS [None]
  - VOMITING [None]
  - BLOOD PRESSURE SYSTOLIC DECREASED [None]
  - PARAESTHESIA [None]
  - ANAPHYLACTIC SHOCK [None]
  - DIARRHOEA [None]
  - LOSS OF CONSCIOUSNESS [None]
  - URTICARIA [None]
